FAERS Safety Report 9634520 (Version 2)
Quarter: 2013Q4

REPORT INFORMATION
  Report Type: Spontaneous
  Country: US (occurrence: US)
  Receive Date: 20131021
  Receipt Date: 20131021
  Transmission Date: 20140711
  Serious: Yes (Hospitalization)
  Sender: FDA-Public Use
  Company Number: US-NAPPMUNDI-USA-2013-0101137

PATIENT
  Age: 49 Year
  Sex: Female
  Weight: 76.19 kg

DRUGS (9)
  1. BUTRANS [Suspect]
     Indication: PAIN
     Dosage: 5 MCG/HR, WEEKLY
     Route: 062
  2. OXYCODONE HCL TABLETS (91-490) [Suspect]
     Indication: PAIN
     Dosage: 5MG - 10MG, PRN
     Route: 048
  3. TRAMADOL                           /00599202/ [Concomitant]
     Indication: PRODUCT USED FOR UNKNOWN INDICATION
     Dosage: 50 MG, Q6H PRN
     Route: 048
  4. CARDIZEM                           /00489701/ [Concomitant]
     Dosage: 300 MG, DAILY
     Route: 048
  5. LISINOPRIL [Concomitant]
     Dosage: 20 MG, DAILY
     Route: 048
  6. CYMBALTA [Concomitant]
     Dosage: 30 MG, DAILY
     Route: 048
  7. ESTRADIOL                          /00045402/ [Concomitant]
     Dosage: 100 MG, DAILY
  8. FLEXERIL                           /00428402/ [Concomitant]
     Dosage: 10 MG, UNK
     Route: 048
  9. SENNA                              /00142201/ [Concomitant]

REACTIONS (1)
  - Constipation [Recovered/Resolved]
